FAERS Safety Report 11827802 (Version 3)
Quarter: 2016Q1

REPORT INFORMATION
  Report Type: Spontaneous
  Country: PT (occurrence: PT)
  Receive Date: 20151211
  Receipt Date: 20160204
  Transmission Date: 20160525
  Serious: Yes (Hospitalization, Other)
  Sender: FDA-Public Use
  Company Number: PT-JNJFOC-20151208502

PATIENT
  Age: 66 Year
  Sex: Male

DRUGS (9)
  1. XARELTO [Suspect]
     Active Substance: RIVAROXABAN
     Indication: ATRIAL FIBRILLATION
     Route: 048
     Dates: start: 201509, end: 20151208
  2. CAPTOPRIL. [Concomitant]
     Active Substance: CAPTOPRIL
     Route: 065
     Dates: end: 20151208
  3. XARELTO [Suspect]
     Active Substance: RIVAROXABAN
     Indication: CEREBROVASCULAR ACCIDENT PROPHYLAXIS
     Route: 048
     Dates: start: 201509, end: 20151208
  4. NEXIUM [Concomitant]
     Active Substance: ESOMEPRAZOLE MAGNESIUM
     Indication: GASTRIC DISORDER
     Route: 048
  5. CRESTOR [Concomitant]
     Active Substance: ROSUVASTATIN CALCIUM
     Route: 065
     Dates: start: 201509
  6. LISINOPRIL AND HYDROCHLOROTHIAZIDE [Concomitant]
     Active Substance: HYDROCHLOROTHIAZIDE\LISINOPRIL
     Route: 065
  7. CONCOR [Concomitant]
     Active Substance: BISOPROLOL FUMARATE
     Route: 065
     Dates: start: 201509, end: 20151208
  8. LEXOTAN [Concomitant]
     Active Substance: BROMAZEPAM
     Route: 065
     Dates: start: 1975
  9. NITRADISC [Concomitant]
     Route: 065
     Dates: start: 201509

REACTIONS (4)
  - Hypertension [Recovered/Resolved]
  - Liver disorder [Recovered/Resolved]
  - Heart rate abnormal [Recovered/Resolved]
  - Heart rate decreased [Recovered/Resolved]

NARRATIVE: CASE EVENT DATE: 201509
